FAERS Safety Report 12623412 (Version 3)
Quarter: 2016Q4

REPORT INFORMATION
  Report Type: Report from Study
  Country: None (occurrence: US)
  Receive Date: 20160804
  Receipt Date: 20161130
  Transmission Date: 20170207
  Serious: No
  Sender: FDA-Public Use
  Company Number: US-ALEXION-A201605663

PATIENT
  Sex: Female
  Weight: 15.15 kg

DRUGS (5)
  1. SOLIRIS [Suspect]
     Active Substance: ECULIZUMAB
     Dosage: 300 MG, EVERY 18DAYS
     Route: 042
  2. SOLIRIS [Suspect]
     Active Substance: ECULIZUMAB
     Indication: HAEMOLYTIC URAEMIC SYNDROME
     Dosage: UNK
     Route: 042
     Dates: start: 20151230
  3. ENALAPRIL [Suspect]
     Active Substance: ENALAPRIL
     Indication: BLOOD PRESSURE ABNORMAL
     Dosage: 0.75 MG, UNK
     Route: 065
     Dates: start: 201608, end: 2016
  4. LISINOPRIL. [Suspect]
     Active Substance: LISINOPRIL
     Dosage: 1 MG, BID
     Route: 065
     Dates: start: 2016
  5. LISINOPRIL. [Suspect]
     Active Substance: LISINOPRIL
     Indication: BLOOD PRESSURE ABNORMAL
     Dosage: UNK
     Route: 065
     Dates: start: 20151201, end: 201608

REACTIONS (2)
  - Proteinuria [Recovered/Resolved]
  - Blood pressure decreased [Not Recovered/Not Resolved]
